FAERS Safety Report 20747120 (Version 1)
Quarter: 2022Q2

REPORT INFORMATION
  Report Type: Spontaneous
  Country: DE (occurrence: DE)
  Receive Date: 20220425
  Receipt Date: 20220425
  Transmission Date: 20220721
  Serious: Yes (Congenital Anomaly)
  Sender: FDA-Public Use
  Company Number: DE-BIOMARINAP-DE-2022-142848

PATIENT
  Sex: Male
  Weight: 3.64 kg

DRUGS (5)
  1. KUVAN [Suspect]
     Active Substance: SAPROPTERIN DIHYDROCHLORIDE
     Indication: Foetal exposure during pregnancy
     Route: 064
  2. CETIRIZINE [Concomitant]
     Active Substance: CETIRIZINE HYDROCHLORIDE
     Indication: Product used for unknown indication
     Route: 064
  3. Diphtheria vaccine toxoid;Pertussis vaccine;Polio vaccine;Tetanus vacc [Concomitant]
     Indication: Product used for unknown indication
     Route: 064
  4. INFLUVAC TETRA [Concomitant]
     Active Substance: INFLUENZA VIRUS VACCINE QUADRIVALENT TYPE A+B
     Indication: Product used for unknown indication
     Route: 064
  5. Rennie [Concomitant]
     Indication: Product used for unknown indication
     Route: 064

REACTIONS (2)
  - Cardiac septal hypertrophy [Recovered/Resolved]
  - Foetal exposure during pregnancy [Unknown]
